FAERS Safety Report 9143028 (Version 2)
Quarter: 2013Q2

REPORT INFORMATION
  Report Type: Spontaneous
  Country: US (occurrence: US)
  Receive Date: 20130306
  Receipt Date: 20130503
  Transmission Date: 20140414
  Serious: No
  Sender: FDA-Public Use
  Company Number: US-PFIZER INC-2013075049

PATIENT
  Age: 49 Year
  Sex: Male
  Weight: 65.76 kg

DRUGS (1)
  1. SERTRALINE [Suspect]
     Indication: MOOD ALTERED
     Dosage: 50 MG, 1X/DAY
     Dates: start: 20130227, end: 201302

REACTIONS (3)
  - Somnambulism [Unknown]
  - Tattoo [Unknown]
  - Nightmare [Unknown]
